FAERS Safety Report 15272226 (Version 3)
Quarter: 2018Q3

REPORT INFORMATION
  Report Type: Spontaneous
  Country: CA (occurrence: CA)
  Receive Date: 20180813
  Receipt Date: 20180910
  Transmission Date: 20181010
  Serious: Yes (Other)
  Sender: FDA-Public Use
  Company Number: CA-PFIZER INC-2018287025

PATIENT
  Sex: Female

DRUGS (3)
  1. BACTERIOSTATIC SODIUM CHLORIDE [Suspect]
     Active Substance: SODIUM CHLORIDE
     Indication: VEHICLE SOLUTION USE
     Dosage: 0.31 ML, SINGLE (INTRAMUSCULAR AND INTRADERMAL)
     Dates: start: 20180625, end: 20180625
  2. BACTERIOSTATIC SODIUM CHLORIDE [Suspect]
     Active Substance: SODIUM CHLORIDE
     Dosage: 0.31 ML, SINGLE (INTRAMUSCULAR AND INTRADERMAL)
     Dates: start: 20180625, end: 20180625
  3. BOTOX [Concomitant]
     Active Substance: ONABOTULINUMTOXINA
     Indication: FACE LIFT
     Dosage: 31 UNITS SINGLE, INTRAMUSCULAR AND INTRADERMAL
     Dates: start: 20180625, end: 20180625

REACTIONS (3)
  - Burning sensation [Recovered/Resolved]
  - Injection site pain [Unknown]
  - Injection site swelling [Unknown]
